FAERS Safety Report 5214604-X (Version None)
Quarter: 2007Q1

REPORT INFORMATION
  Report Type: 
  Country: None (occurrence: None)
  Receive Date: 20070117
  Receipt Date: 20070104
  Transmission Date: 20070707
  Serious: Yes (Other)
  Sender: FDA-Public Use
  Company Number: 02100-USA-07-0002

PATIENT
  Sex: Female

DRUGS (11)
  1. CILOSTAZOL [Suspect]
     Dosage: DF ORAL
     Route: 048
     Dates: start: 20060301
  2. AMLODIPINE BESYLATE [Concomitant]
  3. ATORVASTATIN CALCIUM [Concomitant]
  4. METOPROLOL SUCCINATE [Concomitant]
  5. AMILORIDE HCL AND HYDROCHLOROTHIAZIDE [Concomitant]
  6. LEVOTHYROXINE SODIUM [Concomitant]
  7. ASPIRIN [Concomitant]
  8. CALCIUM WITH VITAMIN D [Concomitant]
  9. STOOL SOFTNER [Concomitant]
  10. OMEGA-3 MARINE TRIGLYCERIDES [Concomitant]
  11. DIOVAN HCT [Concomitant]

REACTIONS (8)
  - ADVERSE DRUG REACTION [None]
  - DEAFNESS UNILATERAL [None]
  - ENDARTERECTOMY [None]
  - JOINT SWELLING [None]
  - NAUSEA [None]
  - OEDEMA PERIPHERAL [None]
  - PAIN [None]
  - VERTIGO [None]
